FAERS Safety Report 9223550 (Version 1)
Quarter: 2013Q2

REPORT INFORMATION
  Report Type: Spontaneous
  Country: US (occurrence: US)
  Receive Date: 20130410
  Receipt Date: 20130410
  Transmission Date: 20140414
  Serious: Yes (Hospitalization)
  Sender: FDA-Public Use
  Company Number: US-FRI-1000020837

PATIENT
  Age: 67 Year
  Sex: Male

DRUGS (10)
  1. LEVOTHROID [Suspect]
  2. SAXAGLIPTIN [Suspect]
     Indication: TYPE 2 DIABETES MELLITUS
     Dates: start: 20100729, end: 20130123
  3. GLIPIZIDE [Suspect]
     Indication: DIABETES MELLITUS
  4. PLACEBO [Suspect]
     Indication: TYPE 2 DIABETES MELLITUS
     Dates: start: 20100729, end: 20130123
  5. ASPIRIN [Concomitant]
  6. DIURETICS [Concomitant]
  7. STATIN [Concomitant]
  8. BETA-BLOCKER [Concomitant]
  9. ANGIOTENSIN CONVERTING ENZYME INHIBITOR [Concomitant]
  10. ANTI-COAGULANTS [Concomitant]

REACTIONS (1)
  - Atrial fibrillation [Recovered/Resolved]
